FAERS Safety Report 4290971-9 (Version None)
Quarter: 2004Q1

REPORT INFORMATION
  Report Type: 
  Country: None (occurrence: None)
  Receive Date: 20040209
  Receipt Date: 20040129
  Transmission Date: 20041129
  Serious: Yes (Other)
  Sender: FDA-Public Use
  Company Number: 2004-01-1948

PATIENT

DRUGS (1)
  1. INTERFERON INJECTABLE [Suspect]
     Dosage: INTRAVENOUS
     Route: 042

REACTIONS (1)
  - MULTIPLE SCLEROSIS [None]
